FAERS Safety Report 9520386 (Version 4)
Quarter: 2013Q4

REPORT INFORMATION
  Report Type: Spontaneous
  Country: US (occurrence: US)
  Receive Date: 20130912
  Receipt Date: 20131119
  Transmission Date: 20140711
  Serious: Yes (Other)
  Sender: FDA-Public Use
  Company Number: US-RB-058199-13

PATIENT
  Age: 0 Day
  Sex: Male

DRUGS (3)
  1. BUPRENORPHINE [Suspect]
     Indication: DRUG DEPENDENCE
     Route: 064
  2. PRENATAL VITAMINS [Suspect]
     Indication: PREGNANCY
     Dosage: DOSING DETAILS UNKNOWN
     Route: 064
  3. POLYETHYLENE GLYCOL [Suspect]
     Indication: CONSTIPATION
     Dosage: DOSING DETAILS UNKNOWN
     Route: 064

REACTIONS (2)
  - Foetal exposure during pregnancy [Recovered/Resolved]
  - Fever neonatal [Recovered/Resolved]
